FAERS Safety Report 11858132 (Version 1)
Quarter: 2015Q4

REPORT INFORMATION
  Report Type: Spontaneous
  Country: US (occurrence: US)
  Receive Date: 20151222
  Receipt Date: 20151222
  Transmission Date: 20160305
  Serious: Yes (Other)
  Sender: FDA-Public Use
  Company Number: US-TEVA-581312USA

PATIENT
  Age: 81 Year
  Sex: Female
  Weight: 64.01 kg

DRUGS (2)
  1. TRAZODONE [Suspect]
     Active Substance: TRAZODONE HYDROCHLORIDE
     Route: 065
  2. TRAZODONE [Suspect]
     Active Substance: TRAZODONE HYDROCHLORIDE
     Dosage: 25 MILLIGRAM DAILY;
     Route: 065
     Dates: start: 20150626

REACTIONS (6)
  - Tinnitus [Unknown]
  - Anxiety [Unknown]
  - Urinary incontinence [Unknown]
  - Urinary retention [Unknown]
  - Atrial fibrillation [Not Recovered/Not Resolved]
  - Drug prescribing error [Unknown]
